FAERS Safety Report 5522916-5 (Version None)
Quarter: 2007Q4

REPORT INFORMATION
  Report Type: 
  Country: None (occurrence: None)
  Receive Date: 20071116
  Receipt Date: 20071102
  Transmission Date: 20080405
  Serious: Yes (Hospitalization)
  Sender: FDA-Public Use
  Company Number: 2007SP003829

PATIENT
  Age: 73 Year
  Sex: Female

DRUGS (11)
  1. XOPENEX [Suspect]
     Indication: ASTHMA
     Dosage: 0.63 MG/3ML;QID;INHALATION; 0.63 MG/3ML;BID;INHALATION
     Route: 055
     Dates: start: 20050101, end: 20070101
  2. XOPENEX [Suspect]
     Indication: DYSPNOEA
     Dosage: 0.63 MG/3ML;QID;INHALATION; 0.63 MG/3ML;BID;INHALATION
     Route: 055
     Dates: start: 20050101, end: 20070101
  3. XOPENEX [Suspect]
     Indication: ASTHMA
     Dosage: 0.63 MG/3ML;QID;INHALATION; 0.63 MG/3ML;BID;INHALATION
     Route: 055
     Dates: start: 20070101, end: 20071001
  4. XOPENEX [Suspect]
     Indication: DYSPNOEA
     Dosage: 0.63 MG/3ML;QID;INHALATION; 0.63 MG/3ML;BID;INHALATION
     Route: 055
     Dates: start: 20070101, end: 20071001
  5. MICARDIS [Concomitant]
  6. TYLENOL [Concomitant]
  7. REQUIP [Concomitant]
  8. ZANTAC [Concomitant]
  9. VITAMINS [Concomitant]
  10. ACETYLSALICYLIC ACID SRT [Concomitant]
  11. CALCIUM [Concomitant]

REACTIONS (2)
  - PNEUMONIA [None]
  - THROMBOSIS [None]
